FAERS Safety Report 16710389 (Version 1)
Quarter: 2019Q4

REPORT INFORMATION
  Report Type: Spontaneous
  Country: US (occurrence: US)
  Receive Date: 20190815
  Receipt Date: 20190815
  Transmission Date: 20200122
  Serious: Yes (Hospitalization)
  Sender: FDA-Public Use
  Company Number: None

PATIENT
  Age: 42 Year
  Sex: Female

DRUGS (3)
  1. ASPIRIN 81 CHW [Concomitant]
  2. ATORVASTATIN TAB 10 MG [Concomitant]
  3. AFINITOR [Suspect]
     Active Substance: EVEROLIMUS
     Route: 048
     Dates: start: 20180203

REACTIONS (2)
  - Surgery [None]
  - Therapy cessation [None]
